FAERS Safety Report 9894468 (Version 1)
Quarter: 2014Q1

REPORT INFORMATION
  Report Type: Spontaneous
  Country: CL (occurrence: CL)
  Receive Date: 20140213
  Receipt Date: 20140213
  Transmission Date: 20141002
  Serious: Yes (Hospitalization, Other)
  Sender: FDA-Public Use
  Company Number: CL-PFIZER INC-2014038278

PATIENT
  Sex: Male

DRUGS (3)
  1. VIAGRA [Suspect]
     Indication: ERECTILE DYSFUNCTION
     Dosage: UNK
     Dates: start: 2009, end: 201302
  2. AMIODARONE [Concomitant]
     Dosage: 200 MG, UNK
     Dates: start: 20140118
  3. ATORVASTATIN [Concomitant]
     Dosage: UNK
     Dates: start: 20140118

REACTIONS (3)
  - Arrhythmia [Unknown]
  - Glaucoma [Unknown]
  - Cataract [Unknown]
